FAERS Safety Report 5513048-0 (Version None)
Quarter: 2007Q4

REPORT INFORMATION
  Report Type: 
  Country: None (occurrence: None)
  Receive Date: 20071108
  Receipt Date: 20071029
  Transmission Date: 20080405
  Serious: Yes (Other)
  Sender: FDA-Public Use
  Company Number: CHNY2007AU03645

PATIENT
  Sex: Female

DRUGS (1)
  1. NICOTINELL CHEWING GUM FRUIT (NCH)(NICOTINE) CHEWABLE GUM [Suspect]
     Indication: SMOKING CESSATION THERAPY
     Dosage: CHEWED

REACTIONS (4)
  - DYSPHAGIA [None]
  - DYSPNOEA [None]
  - ORAL DISCOMFORT [None]
  - THROAT TIGHTNESS [None]
